FAERS Safety Report 25068259 (Version 1)
Quarter: 2025Q1

REPORT INFORMATION
  Report Type: Spontaneous
  Country: FR (occurrence: FR)
  Receive Date: 20250312
  Receipt Date: 20250312
  Transmission Date: 20250408
  Serious: Yes (Hospitalization)
  Sender: ABBVIE
  Company Number: None

PATIENT
  Age: 60 Year
  Sex: Male
  Weight: 73 kg

DRUGS (4)
  1. ESCITALOPRAM [Suspect]
     Active Substance: ESCITALOPRAM OXALATE
     Indication: Mixed anxiety and depressive disorder
     Dosage: 20 MILLIGRAM
     Route: 048
  2. BACLOFEN [Concomitant]
     Active Substance: BACLOFEN
     Indication: Alcoholism
     Dosage: 20 MILLIGRAM
     Route: 048
  3. CYAMEMAZINE [Concomitant]
     Active Substance: CYAMEMAZINE
     Indication: Mixed anxiety and depressive disorder
     Dosage: 100 MILLIGRAM
     Route: 048
  4. OXAZEPAM [Concomitant]
     Active Substance: OXAZEPAM
     Indication: Mixed anxiety and depressive disorder
     Dosage: 10 MILLIGRAM
     Route: 048

REACTIONS (2)
  - Hyponatraemia [Recovering/Resolving]
  - Inappropriate antidiuretic hormone secretion [Recovering/Resolving]
